FAERS Safety Report 8484945-1 (Version None)
Quarter: 2012Q3

REPORT INFORMATION
  Report Type: 
  Country: None (occurrence: None)
  Receive Date: 20120703
  Receipt Date: 20120703
  Transmission Date: 20120928
  Serious: Yes (Disabling)
  Sender: FDA-Public Use
  Company Number: US-PFIZER INC-2010US-36172

PATIENT
  Sex: Female

DRUGS (3)
  1. CALAN [Suspect]
     Indication: HYPERTENSION
     Dosage: UNK
     Route: 065
  2. MAXZIDE [Concomitant]
     Dosage: 75/50
     Route: 065
  3. DIOVAN [Concomitant]
     Dosage: 80 MG, UNK
     Route: 065

REACTIONS (1)
  - NO ADVERSE EVENT [None]
